FAERS Safety Report 9970030 (Version 5)
Quarter: 2014Q2

REPORT INFORMATION
  Report Type: Spontaneous
  Country: US (occurrence: US)
  Receive Date: 20140306
  Receipt Date: 20140630
  Transmission Date: 20141212
  Serious: Yes (Hospitalization, Other)
  Sender: FDA-Public Use
  Company Number: 2014SP001073

PATIENT
  Age: 70 Year
  Sex: Female

DRUGS (10)
  1. FLUOROURACIL [Suspect]
     Indication: COLORECTAL CANCER METASTATIC
     Route: 042
     Dates: start: 20140120, end: 20140204
  2. FLUOROURACIL [Suspect]
     Indication: COLORECTAL CANCER METASTATIC
     Route: 042
     Dates: start: 20140120, end: 20140204
  3. FLUOROURACIL [Suspect]
     Indication: COLORECTAL CANCER METASTATIC
     Dates: start: 20140225
  4. OXALIPLATIN [Suspect]
     Indication: COLORECTAL CANCER METASTATIC
     Route: 042
     Dates: start: 20140120, end: 20140204
  5. BEVACIZUMAB [Concomitant]
     Indication: COLORECTAL CANCER METASTATIC
     Route: 042
     Dates: start: 20140120, end: 20140204
  6. ACETYLSALICYLIC ACID [Concomitant]
     Indication: CORONARY ARTERY DISEASE
     Dates: start: 2012
  7. INSULIN GLARGINE [Concomitant]
     Indication: DIABETES MELLITUS
  8. OXYCODONE [Concomitant]
     Indication: BACK PAIN
     Dates: start: 20140108
  9. DIAZEPAM [Concomitant]
     Indication: ANXIETY
     Dates: start: 20140115
  10. WARFARIN [Concomitant]
     Indication: THROMBOSIS
     Dates: start: 2010

REACTIONS (3)
  - Enteritis [Recovered/Resolved]
  - Abdominal pain [Unknown]
  - Neutropenia [Unknown]
